FAERS Safety Report 4756931-6 (Version None)
Quarter: 2005Q3

REPORT INFORMATION
  Report Type: 
  Country: None (occurrence: None)
  Receive Date: 20050830
  Receipt Date: 20050825
  Transmission Date: 20060218
  Serious: Yes (Death)
  Sender: FDA-Public Use
  Company Number: CG-MERCK-0508USA04037

PATIENT
  Age: 45 Year
  Sex: Female

DRUGS (1)
  1. STROMECTOL [Suspect]
     Route: 048
     Dates: start: 20050127, end: 20050127

REACTIONS (4)
  - COMA [None]
  - DEATH [None]
  - DEHYDRATION [None]
  - PYREXIA [None]
